FAERS Safety Report 24571602 (Version 1)
Quarter: 2024Q4

REPORT INFORMATION
  Report Type: Spontaneous
  Country: US (occurrence: US)
  Receive Date: 20241101
  Receipt Date: 20241101
  Transmission Date: 20250115
  Serious: No
  Sender: CSL BEHRING
  Company Number: US-BEH-2024182388

PATIENT
  Age: 19 Year
  Sex: Female

DRUGS (1)
  1. HIZENTRA [Suspect]
     Active Substance: HUMAN IMMUNOGLOBULIN G
     Dosage: 10 G/50 ML PREFILLED SYRINGE
     Route: 065

REACTIONS (2)
  - Incorrect dose administered [Unknown]
  - Infusion site discharge [Unknown]
